FAERS Safety Report 17879569 (Version 3)
Quarter: 2020Q3

REPORT INFORMATION
  Report Type: Spontaneous
  Country: US (occurrence: US)
  Receive Date: 20200610
  Receipt Date: 20200710
  Transmission Date: 20201103
  Serious: No
  Sender: FDA-Public Use
  Company Number: US-MYLANLABS-2020M1054067

PATIENT
  Sex: Female

DRUGS (2)
  1. KETAMINE [Concomitant]
     Active Substance: KETAMINE
     Indication: COMPLEX REGIONAL PAIN SYNDROME
     Dosage: UNK
  2. SCOPOLAMINE TRANSDERMAL SYSTEM [Suspect]
     Active Substance: SCOPOLAMINE
     Indication: NAUSEA
     Dosage: 2 MILLIGRAM, Q3D
     Route: 062

REACTIONS (3)
  - Off label use [Unknown]
  - Drug ineffective [Recovering/Resolving]
  - Product adhesion issue [Unknown]
